FAERS Safety Report 5206704-5 (Version None)
Quarter: 2007Q1

REPORT INFORMATION
  Report Type: 
  Country: None (occurrence: None)
  Receive Date: 20070109
  Receipt Date: 20061227
  Transmission Date: 20070707
  Serious: Yes (Other)
  Sender: FDA-Public Use
  Company Number: B0452788A

PATIENT
  Age: 3 Year
  Sex: Male

DRUGS (13)
  1. ALKERAN [Suspect]
     Indication: NEUROBLASTOMA
     Dosage: 100 MG/M2 / SINGLE DOSE /
  2. TRIMETHOPRIM + SULFAMETHOXAZOLE [Suspect]
  3. FUROSEMIDE [Suspect]
  4. ZOFRAN [Suspect]
  5. TRETINOIN [Suspect]
  6. OMEPRAZOLE [Suspect]
  7. MYLERAN [Suspect]
     Indication: NEUROBLASTOMA
     Dosage: 150 MG/M2 / CYCLIC / ORAL
     Route: 048
  8. FLUCONAZOLE [Concomitant]
  9. GENTAMICIN SULFATE [Concomitant]
  10. CLAVULANIC AC+TICARCILLIN [Concomitant]
  11. CEPHALOTHIN SODIUM [Concomitant]
  12. CIDOFOVIR [Concomitant]
  13. PROBENECID [Concomitant]

REACTIONS (8)
  - ABDOMINAL PAIN [None]
  - COMPLICATIONS OF BONE MARROW TRANSPLANT [None]
  - DIARRHOEA [None]
  - METASTASIS [None]
  - NEUROBLASTOMA [None]
  - PANCREATITIS [None]
  - SEPSIS [None]
  - STENOTROPHOMONAS INFECTION [None]
